FAERS Safety Report 5679748-7 (Version None)
Quarter: 2008Q1

REPORT INFORMATION
  Report Type: 
  Country: None (occurrence: None)
  Receive Date: 20080324
  Receipt Date: 20080314
  Transmission Date: 20080703
  Serious: Yes (Other)
  Sender: FDA-Public Use
  Company Number: S07-USA-06459-01

PATIENT
  Age: 21 Year
  Sex: Female

DRUGS (2)
  1. LEXAPRO [Suspect]
     Indication: DEPRESSION
     Dosage: 10 MG QD PO
     Route: 048
     Dates: start: 20071219
  2. BIRTH CONTROL PILLS (NOS) [Suspect]

REACTIONS (10)
  - DIARRHOEA [None]
  - DIZZINESS [None]
  - DRUG INTERACTION [None]
  - HEADACHE [None]
  - INTENTIONAL SELF-INJURY [None]
  - METRORRHAGIA [None]
  - NAUSEA [None]
  - RASH [None]
  - SKIN LACERATION [None]
  - STRESS [None]
